FAERS Safety Report 9657762 (Version 1)
Quarter: 2013Q4

REPORT INFORMATION
  Report Type: Spontaneous
  Country: US (occurrence: US)
  Receive Date: 20131030
  Receipt Date: 20131030
  Transmission Date: 20140711
  Serious: Yes (Other)
  Sender: FDA-Public Use
  Company Number: US-SA-2013SA109978

PATIENT
  Age: 34 Year
  Sex: Male
  Weight: 86.41 kg

DRUGS (6)
  1. FABRAZYME [Suspect]
     Indication: FABRY^S DISEASE
     Route: 042
  2. DIPHENHYDRAMINE [Concomitant]
  3. NORMAL SALINE [Concomitant]
  4. EPIPEN [Concomitant]
  5. LISINOPRIL [Concomitant]
  6. ASPIRIN [Concomitant]

REACTIONS (1)
  - Influenza [Unknown]
